FAERS Safety Report 8448023-X (Version None)
Quarter: 2012Q2

REPORT INFORMATION
  Report Type: 
  Country: None (occurrence: None)
  Receive Date: 20120619
  Receipt Date: 20120524
  Transmission Date: 20120825
  Serious: Yes (Other)
  Sender: FDA-Public Use
  Company Number: JP-PFIZER INC-2012097392

PATIENT
  Age: 80 Year
  Sex: Female

DRUGS (3)
  1. ARICEPT [Interacting]
     Dosage: 5 MG, UNK
     Dates: start: 20100901
  2. BENIDIPINE [Interacting]
     Dosage: UNK
  3. ATORVASTATIN CALCIUM [Suspect]
     Dosage: UNK

REACTIONS (2)
  - ELECTROCARDIOGRAM QT PROLONGED [None]
  - DRUG INTERACTION [None]
